FAERS Safety Report 8390575-2 (Version None)
Quarter: 2012Q2

REPORT INFORMATION
  Report Type: 
  Country: None (occurrence: None)
  Receive Date: 20120529
  Receipt Date: 20120516
  Transmission Date: 20120825
  Serious: Yes (Hospitalization)
  Sender: FDA-Public Use
  Company Number: IE-ELI_LILLY_AND_COMPANY-IE201205005594

PATIENT
  Sex: Female

DRUGS (7)
  1. LIDOCAINE [Concomitant]
  2. SERC                               /00034201/ [Concomitant]
  3. CALCIUM CARBONATE [Concomitant]
  4. PROCAL [Concomitant]
  5. FORTEO [Suspect]
     Indication: OSTEOPOROSIS
     Dosage: 20 UG, UNK
     Route: 058
     Dates: start: 20120228
  6. WARFARIN SODIUM [Concomitant]
  7. FRUMIL [Concomitant]

REACTIONS (1)
  - HOSPITALISATION [None]
